FAERS Safety Report 4370812-1 (Version None)
Quarter: 2004Q2

REPORT INFORMATION
  Report Type: 
  Country: None (occurrence: None)
  Receive Date: 20040601
  Receipt Date: 20040519
  Transmission Date: 20050107
  Serious: Yes (Life-Threatening)
  Sender: FDA-Public Use
  Company Number: J081-002-001648

PATIENT
  Age: 80 Year
  Sex: Male

DRUGS (4)
  1. ARICEPT [Suspect]
     Dosage: 5 MG, 1 IN 1 D, ORAL
     Route: 048
     Dates: start: 20040401, end: 20040430
  2. LIPITOR [Suspect]
     Dosage: ORAL
     Route: 048
     Dates: end: 20040430
  3. AMARYL [Concomitant]
  4. BUFFERIN [Concomitant]

REACTIONS (1)
  - ARRHYTHMIA [None]
